FAERS Safety Report 5553706-5 (Version None)
Quarter: 2007Q4

REPORT INFORMATION
  Report Type: 
  Country: None (occurrence: None)
  Receive Date: 20071213
  Receipt Date: 20071207
  Transmission Date: 20080405
  Serious: Yes (Hospitalization)
  Sender: FDA-Public Use
  Company Number: FR-WYE-H01611607

PATIENT
  Sex: Female

DRUGS (4)
  1. INIPOMP [Suspect]
     Indication: GASTRIC ULCER
     Route: 048
     Dates: start: 20060101
  2. OXAZEPAM [Suspect]
     Indication: ANXIETY
     Route: 048
     Dates: start: 20071009, end: 20071022
  3. DEROXAT [Suspect]
     Indication: DEPRESSION
     Route: 048
     Dates: start: 20071012, end: 20071025
  4. IMOVANE [Suspect]
     Indication: SLEEP DISORDER
     Route: 048
     Dates: start: 20070808, end: 20070819

REACTIONS (2)
  - HALLUCINATION, VISUAL [None]
  - HYPONATRAEMIA [None]
